FAERS Safety Report 8964745 (Version 1)
Quarter: 2012Q4

REPORT INFORMATION
  Report Type: 
  Country: US (occurrence: US)
  Receive Date: 20121214
  Receipt Date: 20121214
  Transmission Date: 20130627
  Serious: No
  Sender: FDA-Public Use
  Company Number: US-BAYER-2012-126432

PATIENT
  Age: 68 Year
  Sex: Male

DRUGS (4)
  1. LEVITRA [Suspect]
     Indication: ERECTILE DYSFUNCTION
     Dosage: 1 DF, PRN
     Route: 048
     Dates: start: 20120112, end: 20120112
  2. PANTOPRAZOLE [Concomitant]
     Dosage: 40 mg, BID
  3. LISINOPRIL [Concomitant]
     Dosage: 20 mg, in am
  4. SIMVASTATIN [Concomitant]
     Dosage: 40 mg, QD

REACTIONS (1)
  - Drug ineffective [Unknown]
